FAERS Safety Report 7699319-0 (Version None)
Quarter: 2011Q3

REPORT INFORMATION
  Report Type: 
  Country: None (occurrence: None)
  Receive Date: 20110819
  Receipt Date: 20110808
  Transmission Date: 20111222
  Serious: Yes (Other)
  Sender: FDA-Public Use
  Company Number: US-BAYER-2010-001718

PATIENT
  Age: 28 Year
  Sex: Female
  Weight: 102.49 kg

DRUGS (13)
  1. YASMIN [Suspect]
     Indication: CONTRACEPTION
     Dosage: UNK
     Dates: start: 20080916, end: 20081118
  2. PROVENTIL-HFA [Concomitant]
     Dosage: UNK
  3. CLARITIN [Concomitant]
     Dosage: 10 MG, QD
     Dates: start: 20081006
  4. MOTRIN [Concomitant]
     Dosage: UNK
     Dates: start: 20010101
  5. HYDROXYCUT [Concomitant]
  6. TYLENOL-500 [Concomitant]
  7. ZICAM [Concomitant]
     Dosage: UNK
     Dates: start: 20080901
  8. YASMIN [Suspect]
     Indication: MENSTRUATION IRREGULAR
  9. MULTI-VITAMIN [Concomitant]
  10. VITAMIN B6 [Concomitant]
  11. CHROMIUM PICOLINATE [Concomitant]
  12. PREDNISONE [Concomitant]
     Dosage: 20 MG, BID
     Dates: start: 20080910
  13. BENADRYL [Concomitant]
     Dosage: UNK
     Dates: start: 20080901

REACTIONS (4)
  - PULMONARY EMBOLISM [None]
  - PAIN [None]
  - CHEST PAIN [None]
  - DYSPNOEA [None]
